FAERS Safety Report 4372999-3 (Version None)
Quarter: 2004Q2

REPORT INFORMATION
  Report Type: 
  Country: None (occurrence: None)
  Receive Date: 20040603
  Receipt Date: 20040512
  Transmission Date: 20050107
  Serious: Yes (Hospitalization)
  Sender: FDA-Public Use
  Company Number: US_020887305

PATIENT
  Age: 81 Year
  Sex: Male
  Weight: 82 kg

DRUGS (15)
  1. PEMETREXED [Suspect]
     Indication: MESOTHELIOMA
     Dosage: 940 MG
     Dates: start: 20020809
  2. CISPLATIN [Suspect]
     Indication: MESOTHELIOMA
     Dosage: 140 MG
     Dates: start: 20020809
  3. FOLIC ACID [Concomitant]
  4. VITAMIN B-12 [Concomitant]
  5. PRILOSEC [Concomitant]
  6. OXYCODONE AND ACETAMINOPHEN [Concomitant]
  7. PAXIL [Concomitant]
  8. NEURONTIN [Concomitant]
  9. CELEBREX [Concomitant]
  10. SENNTAB (SENNA LEAF) [Concomitant]
  11. MULTIVITAMIN [Concomitant]
  12. MEGESTROL [Concomitant]
  13. XOPENEX [Concomitant]
  14. ATROVENT [Concomitant]
  15. PULMICORT [Concomitant]

REACTIONS (14)
  - ASTHENIA [None]
  - BILIRUBIN CONJUGATED INCREASED [None]
  - BLOOD ALBUMIN DECREASED [None]
  - BLOOD CHLORIDE DECREASED [None]
  - BLOOD GLUCOSE INCREASED [None]
  - BLOOD SODIUM DECREASED [None]
  - DEHYDRATION [None]
  - DIZZINESS [None]
  - GASTROINTESTINAL PAIN [None]
  - HAEMATOCRIT DECREASED [None]
  - HAEMOGLOBIN DECREASED [None]
  - PLATELET COUNT INCREASED [None]
  - RED BLOOD CELL COUNT DECREASED [None]
  - WHITE BLOOD CELL COUNT INCREASED [None]
